FAERS Safety Report 5641355-X (Version None)
Quarter: 2008Q1

REPORT INFORMATION
  Report Type: 
  Country: None (occurrence: None)
  Receive Date: 20080227
  Receipt Date: 20070622
  Transmission Date: 20080703
  Serious: No
  Sender: FDA-Public Use
  Company Number: A0659141A

PATIENT
  Age: 68 Year

DRUGS (3)
  1. NICORETTE [Suspect]
     Dates: start: 20070616
  2. NICORETTE [Suspect]
     Dates: start: 20070616
  3. NICORETTE (MINT) [Suspect]
     Dates: start: 20070616

REACTIONS (2)
  - DYSGEUSIA [None]
  - POOR QUALITY SLEEP [None]
